FAERS Safety Report 23491249 (Version 1)
Quarter: 2024Q1

REPORT INFORMATION
  Report Type: Report from Study
  Country: US (occurrence: US)
  Receive Date: 20240207
  Receipt Date: 20240207
  Transmission Date: 20240410
  Serious: Yes (Other)
  Sender: FDA-Public Use
  Company Number: US-ABBVIE-5622251

PATIENT
  Age: 12 Year
  Sex: Male
  Weight: 56.69 kg

DRUGS (2)
  1. HUMIRA [Suspect]
     Active Substance: ADALIMUMAB
     Indication: Crohn^s disease
     Dosage: FORM STRENGTH WAS 40 MILLIGRAM
     Route: 058
     Dates: start: 20190411
  2. RITALIN [Concomitant]
     Active Substance: METHYLPHENIDATE HYDROCHLORIDE
     Indication: Attention deficit hyperactivity disorder

REACTIONS (5)
  - Pyoderma gangrenosum [Recovering/Resolving]
  - Pyoderma gangrenosum [Recovered/Resolved]
  - Gastrointestinal disorder [Unknown]
  - Nasopharyngitis [Unknown]
  - Rash [Unknown]

NARRATIVE: CASE EVENT DATE: 20230818
